FAERS Safety Report 7532801-5 (Version None)
Quarter: 2011Q2

REPORT INFORMATION
  Report Type: 
  Country: None (occurrence: None)
  Receive Date: 20110608
  Receipt Date: 20110531
  Transmission Date: 20111010
  Serious: Yes (Other)
  Sender: FDA-Public Use
  Company Number: B0724742A

PATIENT
  Age: 14 Year
  Sex: Male

DRUGS (1)
  1. VENTOLIN HFA [Suspect]
     Route: 065

REACTIONS (1)
  - ASTHMA [None]
